FAERS Safety Report 7024651-3 (Version None)
Quarter: 2010Q3

REPORT INFORMATION
  Report Type: 
  Country: None (occurrence: None)
  Receive Date: 20100929
  Receipt Date: 20100918
  Transmission Date: 20110219
  Serious: Yes (Other)
  Sender: FDA-Public Use
  Company Number: 2010SP050416

PATIENT
  Sex: Male

DRUGS (4)
  1. INTRON A [Suspect]
     Dosage: 30 MIU;IV, MIU; MIU;TIW
     Route: 042
     Dates: start: 20100427
  2. INTRON A [Suspect]
     Dosage: 30 MIU;IV, MIU; MIU;TIW
     Route: 042
     Dates: start: 20100503
  3. INTRON A [Suspect]
     Dosage: 30 MIU;IV, MIU; MIU;TIW
     Route: 042
     Dates: start: 20100506
  4. INTRON A [Suspect]
     Dosage: 30 MIU;IV, MIU; MIU;TIW
     Route: 042
     Dates: start: 20100725

REACTIONS (15)
  - BLOOD GLUCOSE DECREASED [None]
  - CHILLS [None]
  - DIARRHOEA [None]
  - DIZZINESS [None]
  - DYSGEUSIA [None]
  - FATIGUE [None]
  - HEADACHE [None]
  - HYPERTENSION [None]
  - HYPOTENSION [None]
  - LOSS OF CONSCIOUSNESS [None]
  - NAUSEA [None]
  - PAIN [None]
  - ROAD TRAFFIC ACCIDENT [None]
  - SKIN DISCOLOURATION [None]
  - WHITE BLOOD CELL COUNT DECREASED [None]
